FAERS Safety Report 13452063 (Version 3)
Quarter: 2018Q1

REPORT INFORMATION
  Report Type: Spontaneous
  Country: US (occurrence: US)
  Receive Date: 20170418
  Receipt Date: 20180323
  Transmission Date: 20180508
  Serious: No
  Sender: FDA-Public Use
  Company Number: US-VERTEX PHARMACEUTICALS-2017-002087

PATIENT
  Age: 28 Year
  Sex: Female

DRUGS (21)
  1. LEVALBUTEROL. [Concomitant]
     Active Substance: LEVALBUTEROL
  2. PANTOPRAZOLE [Concomitant]
     Active Substance: PANTOPRAZOLE
     Dosage: 40 MG, UNK
  3. POLYETHYLENE GLYCOL [Concomitant]
     Active Substance: POLYETHYLENE GLYCOLS
  4. MONTELUKAST [Concomitant]
     Active Substance: MONTELUKAST SODIUM
     Dosage: 10 MG, UNK
  5. ACETYLCYSTEIN [Concomitant]
     Active Substance: ACETYLCYSTEINE
  6. BOOST [Concomitant]
     Active Substance: DIETARY SUPPLEMENT
  7. ORKAMBI [Suspect]
     Active Substance: IVACAFTOR\LUMACAFTOR
     Indication: CYSTIC FIBROSIS
     Dosage: 2 DF (200-125 MG EACH), BID
     Route: 048
     Dates: start: 20151002, end: 2018
  8. CREON [Concomitant]
     Active Substance: PANCRELIPASE AMYLASE\PANCRELIPASE LIPASE\PANCRELIPASE PROTEASE
     Dosage: 24000 UT, UNK
  9. PROAIR HFA [Concomitant]
     Active Substance: ALBUTEROL SULFATE
  10. LANTUS [Concomitant]
     Active Substance: INSULIN GLARGINE
  11. VITAMIN D3 [Concomitant]
     Active Substance: CHOLECALCIFEROL
  12. FLUCONAZOLE. [Concomitant]
     Active Substance: FLUCONAZOLE
  13. RANITIDINE. [Concomitant]
     Active Substance: RANITIDINE
  14. AZITHROMYCIN ANHYDROUS. [Concomitant]
     Active Substance: AZITHROMYCIN ANHYDROUS
     Dosage: 250 MG, UNK
  15. SYMBICORT [Concomitant]
     Active Substance: BUDESONIDE\FORMOTEROL FUMARATE DIHYDRATE
  16. OMEPRAZOLE. [Concomitant]
     Active Substance: OMEPRAZOLE
  17. MOMETASONE [Concomitant]
     Active Substance: MOMETASONE
     Dosage: 50 ?G, UNK
  18. NOVOLOG [Concomitant]
     Active Substance: INSULIN ASPART
  19. IBUPROFEN. [Concomitant]
     Active Substance: IBUPROFEN
  20. PULMOZYME [Concomitant]
     Active Substance: DORNASE ALFA
  21. SODIUM CHLORIDE. [Concomitant]
     Active Substance: SODIUM CHLORIDE

REACTIONS (2)
  - Dyspnoea [Unknown]
  - Drug ineffective [Unknown]

NARRATIVE: CASE EVENT DATE: 201603
